FAERS Safety Report 5303498-X (Version None)
Quarter: 2007Q2

REPORT INFORMATION
  Report Type: 
  Country: None (occurrence: None)
  Receive Date: 20070420
  Receipt Date: 20070413
  Transmission Date: 20071010
  Serious: Yes (Hospitalization)
  Sender: FDA-Public Use
  Company Number: US-AMGEN-US219683

PATIENT
  Sex: Male

DRUGS (17)
  1. PROCRIT [Suspect]
     Indication: MYELODYSPLASTIC SYNDROME
     Route: 058
  2. PROCRIT [Suspect]
     Indication: ANAEMIA
  3. DURAGESIC-100 [Concomitant]
     Route: 062
  4. NEURONTIN [Concomitant]
  5. LASIX [Concomitant]
  6. SYNTHROID [Concomitant]
  7. POTASSIUM ACETATE [Concomitant]
  8. FOSAMAX [Concomitant]
  9. QUININE SULFATE [Concomitant]
  10. MOBIC [Concomitant]
  11. PROSCAR [Concomitant]
  12. IRON [Concomitant]
  13. FOLIC ACID [Concomitant]
  14. HYDROCODONE [Concomitant]
  15. ATIVAN [Concomitant]
  16. DETROL [Concomitant]
  17. BETOPTIC [Concomitant]

REACTIONS (1)
  - BLADDER NEOPLASM [None]
